FAERS Safety Report 5750147-2 (Version None)
Quarter: 2008Q2

REPORT INFORMATION
  Report Type: 
  Country: None (occurrence: None)
  Receive Date: 20080527
  Receipt Date: 20080516
  Transmission Date: 20081010
  Serious: Yes (Other)
  Sender: FDA-Public Use
  Company Number: BE-PFIZER INC-2008037214

PATIENT
  Sex: Female

DRUGS (5)
  1. CHANTIX [Suspect]
     Indication: SMOKING CESSATION THERAPY
     Route: 048
     Dates: start: 20080303, end: 20080306
  2. TEGRETOL [Concomitant]
     Route: 048
  3. VENTOLIN [Concomitant]
     Route: 048
  4. LIPITOR [Concomitant]
     Route: 048
  5. ALBUTEROL [Concomitant]
     Indication: ASTHMA

REACTIONS (1)
  - ASTHMA [None]
